FAERS Safety Report 9801638 (Version 1)
Quarter: 2014Q1

REPORT INFORMATION
  Report Type: Report from Study
  Country: US (occurrence: US)
  Receive Date: 20140107
  Receipt Date: 20140107
  Transmission Date: 20141002
  Serious: Yes (Other)
  Sender: FDA-Public Use
  Company Number: US-JNJFOC-20131217948

PATIENT
  Age: 33 Year
  Sex: Female
  Weight: 59.88 kg

DRUGS (6)
  1. REMICADE [Suspect]
     Indication: CROHN^S DISEASE
     Route: 042
     Dates: start: 201308
  2. REMICADE [Suspect]
     Indication: CROHN^S DISEASE
     Route: 042
     Dates: start: 200705, end: 2011
  3. REMICADE [Suspect]
     Indication: CROHN^S DISEASE
     Route: 042
     Dates: start: 20131116
  4. HUMIRA [Suspect]
     Indication: CROHN^S DISEASE
     Route: 065
     Dates: start: 201101, end: 2013
  5. CORTISONE [Suspect]
     Indication: CROHN^S DISEASE
     Route: 042
     Dates: start: 20131116
  6. 6 MP [Concomitant]
     Indication: CROHN^S DISEASE
     Dosage: 6 MP MADE NAUSEOUS, SO WENT FROM 75 MG TO 50 MG
     Route: 048
     Dates: start: 2013

REACTIONS (3)
  - Exposure during pregnancy [Recovered/Resolved]
  - Premature delivery [Recovered/Resolved]
  - Hypersensitivity [Unknown]
